FAERS Safety Report 10956528 (Version 1)
Quarter: 2015Q1

REPORT INFORMATION
  Report Type: Spontaneous
  Country: US (occurrence: None)
  Receive Date: 20150325
  Receipt Date: 20150325
  Transmission Date: 20150721
  Serious: Yes (Other)
  Sender: FDA-Public Use
  Company Number: None

PATIENT
  Age: 74 Year
  Sex: Female
  Weight: 49.9 kg

DRUGS (15)
  1. VITAMIN E [Concomitant]
     Active Substance: .ALPHA.-TOCOPHEROL
  2. CITRICAL [Concomitant]
     Active Substance: CALCIUM CITRATE
  3. VIT B2 [Concomitant]
  4. VITAMIN C [Concomitant]
     Active Substance: ASCORBIC ACID
  5. VIT A [Concomitant]
  6. LATANOPROST. [Concomitant]
     Active Substance: LATANOPROST
  7. PREMARIN [Concomitant]
     Active Substance: ESTROGENS, CONJUGATED
  8. VIT B [Concomitant]
     Active Substance: VITAMINS
  9. GLUCOMA EYE DROPS [Concomitant]
  10. GARLIC. [Concomitant]
     Active Substance: GARLIC
  11. LIP BALM [Concomitant]
     Active Substance: AVOBENZONE\DIMETHICONE\OCTINOXATE\OXYBENZONE\ZINC OXIDE
  12. FISH OIL [Concomitant]
     Active Substance: FISH OIL
  13. RANITIDINE [Suspect]
     Active Substance: RANITIDINE\RANITIDINE HYDROCHLORIDE
     Indication: PREOPERATIVE CARE
     Dosage: 2 PILLS 1 NITE 1 MORN MOUTH
     Route: 048
     Dates: start: 20130110, end: 20130110
  14. VITAMIN D3 [Concomitant]
     Active Substance: CHOLECALCIFEROL
  15. ZINC [Concomitant]
     Active Substance: ZINC\ZINC CHLORIDE

REACTIONS (2)
  - Tremor [None]
  - Feeling cold [None]

NARRATIVE: CASE EVENT DATE: 20130110
